FAERS Safety Report 10033830 (Version 2)
Quarter: 2014Q2

REPORT INFORMATION
  Report Type: Spontaneous
  Country: US (occurrence: US)
  Receive Date: 20140325
  Receipt Date: 20140519
  Transmission Date: 20141212
  Serious: No
  Sender: FDA-Public Use
  Company Number: US-BIOGENIDEC-2014BI025768

PATIENT
  Sex: Female

DRUGS (11)
  1. TECFIDERA [Suspect]
     Indication: MULTIPLE SCLEROSIS
     Route: 048
     Dates: start: 20131220
  2. TRAZADONE [Concomitant]
  3. BACLOFEN [Concomitant]
  4. VITAMIN D [Concomitant]
  5. VITAMIN C [Concomitant]
  6. FISH OIL [Concomitant]
  7. AMPYRA [Concomitant]
     Indication: MULTIPLE SCLEROSIS
     Route: 048
     Dates: start: 20130624
  8. CYCLOBENZAPRINE [Concomitant]
  9. ZOLOFT [Concomitant]
  10. OXYTROL [Concomitant]
  11. SERTRALINE HCL [Concomitant]

REACTIONS (12)
  - Drug ineffective [Unknown]
  - Pain in extremity [Unknown]
  - Memory impairment [Unknown]
  - Fall [Unknown]
  - Mouth injury [Unknown]
  - Dysstasia [Unknown]
  - Periorbital contusion [Unknown]
  - Hypophagia [Unknown]
  - Muscular weakness [Unknown]
  - Mobility decreased [Unknown]
  - Gait disturbance [Unknown]
  - Balance disorder [Unknown]
